FAERS Safety Report 8029210-1 (Version None)
Quarter: 2012Q1

REPORT INFORMATION
  Report Type: 
  Country: None (occurrence: None)
  Receive Date: 20120106
  Receipt Date: 20120104
  Transmission Date: 20120608
  Serious: Yes (Hospitalization)
  Sender: FDA-Public Use
  Company Number: PHHY2012ZA000855

PATIENT

DRUGS (1)
  1. VALSARTAN [Suspect]
     Dosage: 80 MG, UNK

REACTIONS (1)
  - NEPHROLITHIASIS [None]
